FAERS Safety Report 12207427 (Version 1)
Quarter: 2016Q1

REPORT INFORMATION
  Report Type: Spontaneous
  Country: FR (occurrence: FR)
  Receive Date: 20160324
  Receipt Date: 20160324
  Transmission Date: 20160526
  Serious: Yes (Death, Hospitalization)
  Sender: FDA-Public Use
  Company Number: PHHY2016FR036392

PATIENT
  Age: 82 Year
  Sex: Female

DRUGS (8)
  1. VERAPAMIL [Interacting]
     Active Substance: VERAPAMIL HYDROCHLORIDE
     Indication: ATRIAL FLUTTER
     Dosage: 160 MG, QD
     Route: 065
  2. ATORVASTATIN [Concomitant]
     Active Substance: ATORVASTATIN
     Indication: HYPERCHOLESTEROLAEMIA
     Dosage: 10 MG, QD
     Route: 065
  3. VERAPAMIL [Interacting]
     Active Substance: VERAPAMIL HYDROCHLORIDE
     Indication: HYPERTROPHIC CARDIOMYOPATHY
  4. BISOPROLOL [Suspect]
     Active Substance: BISOPROLOL
     Indication: HYPERTROPHIC CARDIOMYOPATHY
     Dosage: 10 MG, QD
     Route: 065
  5. BISOPROLOL [Interacting]
     Active Substance: BISOPROLOL
     Indication: ATRIAL FLUTTER
  6. FUROSEMIDE. [Concomitant]
     Active Substance: FUROSEMIDE
     Indication: HYPERTENSION
     Dosage: 40 MG, QD
     Route: 065
  7. FLUINDIONE [Concomitant]
     Active Substance: FLUINDIONE
     Indication: ATRIAL FLUTTER
     Dosage: 20 MG, QD
     Route: 065
  8. SPIRONOLACTONE. [Concomitant]
     Active Substance: SPIRONOLACTONE
     Indication: HYPERTENSION
     Dosage: 25 MG, QD
     Route: 065

REACTIONS (4)
  - Cardiac failure congestive [Recovering/Resolving]
  - Sepsis [Unknown]
  - Cardiac arrest [Fatal]
  - Drug interaction [Fatal]
